FAERS Safety Report 20262748 (Version 1)
Quarter: 2021Q4

REPORT INFORMATION
  Report Type: Spontaneous
  Country: NL (occurrence: NL)
  Receive Date: 20211231
  Receipt Date: 20211231
  Transmission Date: 20220303
  Serious: Yes (Hospitalization, Other)
  Sender: FDA-Public Use
  Company Number: None

PATIENT
  Age: 62 Year
  Sex: Female
  Weight: 90 kg

DRUGS (2)
  1. DICLOFENAC [Suspect]
     Active Substance: DICLOFENAC
     Indication: Back pain
     Dosage: 150 MILLIGRAM DAILY; DICLOFENAC POTASSIUM TABLET COATED 50MG / BRAND NAME NOT SPECIFIED
     Route: 065
     Dates: start: 20210601, end: 20210628
  2. HYDROCHLOROTHIAZIDE [Concomitant]
     Active Substance: HYDROCHLOROTHIAZIDE
     Dosage: THERAPY START DATE ASKU, THERAPY END DATE ASKU, 12,5 MG, HYDROCHLOROTHIAZIDE TABLET 12.5MG / BRAND N

REACTIONS (5)
  - Drug hypersensitivity [Recovered/Resolved]
  - Syncope [Recovered/Resolved]
  - Incontinence [Recovered/Resolved]
  - Rash pruritic [Recovered/Resolved]
  - Swollen tongue [Recovered/Resolved]

NARRATIVE: CASE EVENT DATE: 20210627
